FAERS Safety Report 8837885 (Version 1)
Quarter: 2012Q4

REPORT INFORMATION
  Report Type: 
  Country: HR (occurrence: HR)
  Receive Date: 20121012
  Receipt Date: 20121012
  Transmission Date: 20130627
  Serious: Yes (Other)
  Sender: FDA-Public Use
  Company Number: HR-PFIZER INC-2012251930

PATIENT
  Age: 80 Year
  Sex: Male
  Weight: 81 kg

DRUGS (11)
  1. TRITACE [Suspect]
     Indication: HYPERTENSION
     Dosage: 2.5 mg, 1x/day
     Route: 048
     Dates: start: 201010, end: 201105
  2. CONTROLOC [Suspect]
     Dosage: 20 mg, 1x/day
     Route: 048
     Dates: start: 201010, end: 201106
  3. AGGRENOX [Suspect]
     Indication: CEREBROVASCULAR ACCIDENT
     Dosage: 1 DF, 2x/day
     Route: 048
     Dates: start: 20101015
  4. TEOTARD [Suspect]
     Indication: CHRONIC OBSTRUCTIVE PULMONARY DISEASE
     Dosage: 200 mg, 1x/day
     Route: 048
     Dates: start: 201010
  5. CIPRALEX [Suspect]
     Dosage: 5 mg, 1x/day
     Route: 048
     Dates: start: 201010, end: 20120307
  6. NORPREXANIL [Suspect]
     Indication: HYPERTENSION
     Dosage: 1 DF, 1x/day
     Route: 048
     Dates: start: 20120307
  7. CRESTOR [Suspect]
     Dosage: 20 mg, 1x/day
     Route: 048
     Dates: start: 201010, end: 201106
  8. LAMISIL [Concomitant]
     Dosage: UNK
     Route: 061
     Dates: start: 201010, end: 201105
  9. EICOSAPENTAENOIC ACID [Concomitant]
     Dosage: UNK
     Route: 048
     Dates: start: 201012
  10. PUMPKIN OIL [Concomitant]
     Dosage: UNK
     Dates: end: 201208
  11. MAGNESIUM CITRATE [Concomitant]
     Dosage: 300 mg, 1x/day
     Route: 048

REACTIONS (14)
  - Nail discolouration [Unknown]
  - Muscle atrophy [Not Recovered/Not Resolved]
  - Walking disability [Not Recovered/Not Resolved]
  - Haematocrit decreased [Unknown]
  - Flatulence [Unknown]
  - Blood cholesterol increased [Unknown]
  - Nitrite urine present [Unknown]
  - Myalgia [Not Recovered/Not Resolved]
  - Muscle spasms [Not Recovered/Not Resolved]
  - Red blood cell count decreased [Unknown]
  - Haemoglobin decreased [Unknown]
  - Blood uric acid increased [Recovered/Resolved]
  - Diarrhoea [Unknown]
  - Constipation [Unknown]
